FAERS Safety Report 5520075-6 (Version None)
Quarter: 2007Q4

REPORT INFORMATION
  Report Type: 
  Country: None (occurrence: None)
  Receive Date: 20071116
  Receipt Date: 20071107
  Transmission Date: 20080405
  Serious: Yes (Other)
  Sender: FDA-Public Use
  Company Number: US-SHR-US-2006-004877

PATIENT
  Age: 41 Year
  Sex: Female
  Weight: 83 kg

DRUGS (2)
  1. BETASERON [Suspect]
     Indication: SECONDARY PROGRESSIVE MULTIPLE SCLEROSIS
     Dosage: 4 MIU, EVERY 2D
     Route: 058
     Dates: start: 20050831
  2. CLONAZEPAM [Concomitant]
     Indication: MULTIPLE SCLEROSIS
     Dosage: 3 TAB(S), BED T.
     Route: 048

REACTIONS (5)
  - CHEST PAIN [None]
  - DEAFNESS [None]
  - EAR PAIN [None]
  - KIDNEY INFECTION [None]
  - PYREXIA [None]
